FAERS Safety Report 15695470 (Version 2)
Quarter: 2018Q4

REPORT INFORMATION
  Report Type: Spontaneous
  Country: CN (occurrence: CN)
  Receive Date: 20181206
  Receipt Date: 20181213
  Transmission Date: 20190205
  Serious: Yes (Other)
  Sender: FDA-Public Use
  Company Number: CN-ASTRAZENECA-2018SF60214

PATIENT
  Sex: Female
  Weight: 65 kg

DRUGS (2)
  1. BUDESONIDE. [Suspect]
     Active Substance: BUDESONIDE
     Indication: ASTHMA
     Route: 055
     Dates: start: 20180827, end: 20180827
  2. DOXOFYLLINE [Suspect]
     Active Substance: DOXOFYLLINE
     Indication: ASTHMA
     Route: 042
     Dates: start: 20180827, end: 20180827

REACTIONS (1)
  - Ventricular arrhythmia [Recovering/Resolving]
